FAERS Safety Report 24760477 (Version 1)
Quarter: 2024Q4

REPORT INFORMATION
  Report Type: Report from Study
  Country: IT (occurrence: IT)
  Receive Date: 20241220
  Receipt Date: 20241220
  Transmission Date: 20250115
  Serious: Yes (Other)
  Sender: TEVA
  Company Number: None

PATIENT
  Age: 11 Year
  Sex: Male
  Weight: 54 kg

DRUGS (3)
  1. VINCRISTINE [Suspect]
     Active Substance: VINCRISTINE
     Indication: Ewing^s sarcoma
     Dosage: VINCRISTINA TEVA ITALY 2 MG IN PUSH IV
     Route: 042
     Dates: start: 20241111, end: 20241111
  2. DOXORUBICIN [Suspect]
     Active Substance: DOXORUBICIN
     Indication: Ewing^s sarcoma
     Dosage: DOXORUBICIN HYDROCHLORIDE 55 MG DAILY IN 24-HOUR INFUSION
     Route: 042
     Dates: start: 20241111, end: 20241113
  3. CYCLOPHOSPHAMIDE [Suspect]
     Active Substance: CYCLOPHOSPHAMIDE
     Indication: Ewing^s sarcoma
     Dosage: ENDOXAN BAXTER 1800 MG IV OVER 60^
     Route: 042
     Dates: start: 20241111, end: 20241111

REACTIONS (3)
  - Haemoglobin decreased [Recovered/Resolved]
  - Dysuria [Recovered/Resolved]
  - Vomiting [Recovered/Resolved]

NARRATIVE: CASE EVENT DATE: 20241127
